FAERS Safety Report 5096400-X (Version None)
Quarter: 2006Q3

REPORT INFORMATION
  Report Type: 
  Country: None (occurrence: None)
  Receive Date: 20060831
  Receipt Date: 20060821
  Transmission Date: 20061208
  Serious: Yes (Hospitalization, Other)
  Sender: FDA-Public Use
  Company Number: US-2006-003843

PATIENT
  Age: 43 Year
  Sex: Female
  Weight: 52.2 kg

DRUGS (6)
  1. BETASERON [Suspect]
     Indication: RELAPSING-REMITTING MULTIPLE SCLEROSIS
     Dosage: 8 MIU, EVERY 2D
     Route: 058
     Dates: start: 20020211, end: 20060201
  2. BETASERON [Suspect]
     Indication: RELAPSING-REMITTING MULTIPLE SCLEROSIS
     Dosage: 8 MIU, EVERY 2D
     Route: 058
     Dates: start: 20060201
  3. ELAVIL [Concomitant]
  4. MODAFINIL [Concomitant]
  5. MOTRIN [Concomitant]
  6. PRILOSEC [Concomitant]

REACTIONS (6)
  - DRUG INEFFECTIVE [None]
  - INJECTION SITE ATROPHY [None]
  - INJECTION SITE NERVE DAMAGE [None]
  - INSOMNIA [None]
  - PAIN IN EXTREMITY [None]
  - RADIAL NERVE PALSY [None]
